FAERS Safety Report 20939761 (Version 1)
Quarter: 2022Q2

REPORT INFORMATION
  Report Type: Spontaneous
  Country: US (occurrence: US)
  Receive Date: 20220609
  Receipt Date: 20220609
  Transmission Date: 20220721
  Serious: Yes (Other)
  Sender: FDA-Public Use
  Company Number: US-AMGEN-USASP2022088240

PATIENT
  Sex: Female

DRUGS (2)
  1. PROLIA [Suspect]
     Active Substance: DENOSUMAB
     Indication: Osteoporosis postmenopausal
     Dosage: UNK UNK, Q6MO
     Route: 065
     Dates: start: 2019
  2. PROLIA [Suspect]
     Active Substance: DENOSUMAB
     Indication: Osteopenia

REACTIONS (6)
  - Foot fracture [Unknown]
  - Exostosis [Unknown]
  - Tooth disorder [Unknown]
  - Inappropriate schedule of product administration [Unknown]
  - Osteopenia [Not Recovered/Not Resolved]
  - Blood cholesterol increased [Unknown]
